FAERS Safety Report 19953236 (Version 5)
Quarter: 2021Q4

REPORT INFORMATION
  Report Type: Report from Study
  Country: NL (occurrence: NL)
  Receive Date: 20211013
  Receipt Date: 20211110
  Transmission Date: 20220303
  Serious: Yes (Hospitalization)
  Sender: FDA-Public Use
  Company Number: NL-MYLANLABS-2021M1071573

PATIENT
  Age: 40 Year
  Sex: Female
  Weight: 78 kg

DRUGS (4)
  1. GLATIRAMER ACETATE [Suspect]
     Active Substance: GLATIRAMER ACETATE
     Indication: Multiple sclerosis
     Dosage: 40 MILLIGRAM, Q3W
     Route: 058
     Dates: start: 20210930, end: 20211007
  2. GLATIRAMER ACETATE [Suspect]
     Active Substance: GLATIRAMER ACETATE
     Dosage: 40 MILLIGRAM, Q3W
     Route: 058
     Dates: start: 20211008, end: 20211009
  3. GLATIRAMER ACETATE [Suspect]
     Active Substance: GLATIRAMER ACETATE
     Dosage: 40 MILLIGRAM, 3XW
     Route: 058
     Dates: start: 20211012, end: 20211026
  4. PREGABALIN [Concomitant]
     Active Substance: PREGABALIN
     Dosage: 75 MILLIGRAM, PRN, 1 X DAILY 1 CAPSULE WHEN NEEDED
     Route: 048

REACTIONS (5)
  - Body temperature increased [Recovered/Resolved]
  - Pyrexia [Recovered/Resolved]
  - Headache [Recovered/Resolved]
  - Pain in extremity [Recovered/Resolved]
  - Depressed mood [Not Recovered/Not Resolved]

NARRATIVE: CASE EVENT DATE: 20210101
